FAERS Safety Report 8212126-5 (Version None)
Quarter: 2012Q1

REPORT INFORMATION
  Report Type: 
  Country: None (occurrence: None)
  Receive Date: 20120315
  Receipt Date: 20120313
  Transmission Date: 20120608
  Serious: Yes (Other)
  Sender: FDA-Public Use
  Company Number: PHHY2012CA009968

PATIENT
  Sex: Female

DRUGS (6)
  1. ZOLEDRONOC ACID [Suspect]
     Route: 042
     Dates: start: 20100101
  2. ZOLEDRONOC ACID [Suspect]
     Route: 042
     Dates: start: 20110317
  3. CARBOCAL D [Concomitant]
     Dosage: UNK UKN, BID
     Dates: start: 20080101
  4. LOPERAMIDE [Concomitant]
     Dosage: 2 MG, PRN
  5. ZOLEDRONOC ACID [Suspect]
     Indication: OSTEOPOROSIS
     Route: 042
     Dates: start: 20090101
  6. RABEPRAZOLE SODIUM [Concomitant]
     Dosage: 20 MG, BID

REACTIONS (1)
  - DIVERTICULITIS [None]
